FAERS Safety Report 19377340 (Version 2)
Quarter: 2021Q2

REPORT INFORMATION
  Report Type: Report from Study
  Country: CN (occurrence: CN)
  Receive Date: 20210604
  Receipt Date: 20210608
  Transmission Date: 20210717
  Serious: Yes (Life-Threatening, Hospitalization)
  Sender: FDA-Public Use
  Company Number: CN-ASTRAZENECA-2021A024570

PATIENT
  Age: 24951 Day
  Sex: Male

DRUGS (86)
  1. DURVALUMAB. [Suspect]
     Active Substance: DURVALUMAB
     Indication: TRANSITIONAL CELL CARCINOMA
     Route: 042
     Dates: start: 20201015, end: 20201015
  2. DURVALUMAB. [Suspect]
     Active Substance: DURVALUMAB
     Indication: TRANSITIONAL CELL CARCINOMA
     Route: 042
     Dates: start: 20210106, end: 20210106
  3. DURVALUMAB. [Suspect]
     Active Substance: DURVALUMAB
     Indication: TRANSITIONAL CELL CARCINOMA
     Route: 042
     Dates: start: 20210330, end: 20210330
  4. GEMCITABINE. [Suspect]
     Active Substance: GEMCITABINE
     Indication: TRANSITIONAL CELL CARCINOMA
     Dosage: 1000 MG/M2 EVERY THREE WEEKS
     Route: 042
     Dates: start: 20200910, end: 20200910
  5. GEMCITABINE. [Suspect]
     Active Substance: GEMCITABINE
     Indication: TRANSITIONAL CELL CARCINOMA
     Dosage: 1000 MG/M2 EVERY THREE WEEKS
     Route: 042
     Dates: start: 20201105, end: 20201105
  6. GEMCITABINE. [Suspect]
     Active Substance: GEMCITABINE
     Indication: TRANSITIONAL CELL CARCINOMA
     Dosage: 1000 MG/M2 EVERY THREE WEEKS
     Route: 042
     Dates: start: 20201127, end: 20201127
  7. PALONOSETRON HYDROCHLORIDE INJECTION [Concomitant]
     Active Substance: PALONOSETRON HYDROCHLORIDE
     Indication: VOMITING
     Dosage: 5.0ML ONCE/SINGLE ADMINISTRATION
     Route: 042
     Dates: start: 20210106, end: 20210106
  8. PHLOROGLUCINOL FOR INJECTION [Concomitant]
     Indication: MUSCLE SPASMS
     Dosage: 40.0MG ONCE/SINGLE ADMINISTRATION
     Route: 042
     Dates: start: 20210117, end: 20210121
  9. GLUCOSE INJECTION [Concomitant]
     Active Substance: DEXTROSE
     Indication: INFUSION
     Route: 042
     Dates: start: 20210117, end: 20210117
  10. DURVALUMAB. [Suspect]
     Active Substance: DURVALUMAB
     Indication: TRANSITIONAL CELL CARCINOMA
     Route: 042
     Dates: start: 20210525, end: 20210525
  11. TREMELIMUMAB. [Suspect]
     Active Substance: TREMELIMUMAB
     Indication: TRANSITIONAL CELL CARCINOMA
     Route: 042
     Dates: start: 20200923, end: 20200923
  12. TREMELIMUMAB. [Suspect]
     Active Substance: TREMELIMUMAB
     Indication: TRANSITIONAL CELL CARCINOMA
     Route: 042
     Dates: start: 20201015, end: 20201015
  13. CISPLATIN. [Suspect]
     Active Substance: CISPLATIN
     Indication: TRANSITIONAL CELL CARCINOMA
     Dosage: 70 MG/M2 EVERY THREE WEEKS
     Route: 042
     Dates: start: 20200923, end: 20200923
  14. GEMCITABINE. [Suspect]
     Active Substance: GEMCITABINE
     Indication: TRANSITIONAL CELL CARCINOMA
     Dosage: 1000 MG/M2 EVERY THREE WEEKS
     Route: 042
     Dates: start: 20201203, end: 20201203
  15. DEXAMETHASONE SODIUM PHOSPHATE INJECTION [Concomitant]
     Active Substance: DEXAMETHASONE SODIUM PHOSPHATE
     Indication: PROPHYLAXIS OF NAUSEA AND VOMITING
     Dosage: 10.0MG ONCE/SINGLE ADMINISTRATION
     Route: 042
     Dates: start: 20210112, end: 20210112
  16. GLUCOSE AND SODIUM CHLORIDE INJECTION GLUCOSE INJECTION [Concomitant]
     Indication: INFUSION
     Route: 042
     Dates: start: 20210117, end: 20210117
  17. DURVALUMAB. [Suspect]
     Active Substance: DURVALUMAB
     Indication: TRANSITIONAL CELL CARCINOMA
     Route: 042
     Dates: start: 20200902, end: 20200902
  18. TREMELIMUMAB. [Suspect]
     Active Substance: TREMELIMUMAB
     Indication: TRANSITIONAL CELL CARCINOMA
     Route: 042
     Dates: start: 20201105, end: 20201105
  19. GEMCITABINE. [Suspect]
     Active Substance: GEMCITABINE
     Indication: TRANSITIONAL CELL CARCINOMA
     Dosage: 1000 MG/M2 EVERY THREE WEEKS
     Route: 042
     Dates: start: 20201021, end: 20201021
  20. GEMCITABINE. [Suspect]
     Active Substance: GEMCITABINE
     Indication: TRANSITIONAL CELL CARCINOMA
     Dosage: 1000 MG/M2 EVERY THREE WEEKS
     Route: 042
     Dates: start: 20201109, end: 20201109
  21. DEXAMETHASONE SODIUM PHOSPHATE INJECTION [Concomitant]
     Active Substance: DEXAMETHASONE SODIUM PHOSPHATE
     Indication: HYPERSENSITIVITY
     Dosage: 10.0MG ONCE/SINGLE ADMINISTRATION
     Route: 042
     Dates: start: 20210106, end: 20210106
  22. RECOMBINANT HUMAN GRANULOCYTE STIMULATING FACTOR INJECTION [Concomitant]
     Indication: LEUKOPENIA
     Dosage: 300.0UG/INHAL ONCE/SINGLE ADMINISTRATION
     Route: 058
     Dates: start: 20210111, end: 20210111
  23. SODIUM PANTOPRAZOLE FOR INJECTION [Concomitant]
     Indication: GASTRIC DISORDER
     Dosage: 80.0MG ONCE/SINGLE ADMINISTRATION
     Route: 042
     Dates: start: 20210117, end: 20210121
  24. MIXED SUGAR AND ELECTROLYTE INJECTION [Concomitant]
     Indication: INFUSION
     Route: 042
     Dates: start: 20210105, end: 20210108
  25. DURVALUMAB. [Suspect]
     Active Substance: DURVALUMAB
     Indication: TRANSITIONAL CELL CARCINOMA
     Route: 042
     Dates: start: 20210106, end: 20210106
  26. DURVALUMAB. [Suspect]
     Active Substance: DURVALUMAB
     Indication: TRANSITIONAL CELL CARCINOMA
     Route: 042
     Dates: start: 20200923, end: 20200923
  27. DURVALUMAB. [Suspect]
     Active Substance: DURVALUMAB
     Indication: TRANSITIONAL CELL CARCINOMA
     Route: 042
     Dates: start: 20201105, end: 20201105
  28. DURVALUMAB. [Suspect]
     Active Substance: DURVALUMAB
     Indication: TRANSITIONAL CELL CARCINOMA
     Route: 042
     Dates: start: 20210302, end: 20210302
  29. DURVALUMAB. [Suspect]
     Active Substance: DURVALUMAB
     Indication: TRANSITIONAL CELL CARCINOMA
     Route: 042
     Dates: start: 20210525, end: 20210525
  30. GEMCITABINE. [Suspect]
     Active Substance: GEMCITABINE
     Indication: TRANSITIONAL CELL CARCINOMA
     Dosage: 1000 MG/M2 EVERY THREE WEEKS
     Route: 042
     Dates: start: 20200902, end: 20200902
  31. GEMCITABINE. [Suspect]
     Active Substance: GEMCITABINE
     Indication: TRANSITIONAL CELL CARCINOMA
     Dosage: 1000 MG/M2 EVERY THREE WEEKS
     Route: 042
     Dates: start: 20201015, end: 20201015
  32. 0.9% SODIUM CHLORIDE INJECTION [Concomitant]
     Active Substance: SODIUM CHLORIDE
     Indication: OEDEMA
     Route: 042
     Dates: start: 20200812
  33. COMPOUND SODIUM CHLORIDE INJECTION [Concomitant]
     Active Substance: SODIUM CHLORIDE
     Indication: INFUSION
     Dosage: 500.0ML ONCE/SINGLE ADMINISTRATION
     Route: 042
     Dates: start: 20210118, end: 20210118
  34. TANSULOSIN HYDROCHLORIDE SUSTAINED RELEASE CAPSULE [Concomitant]
     Indication: POLLAKIURIA
     Dosage: 0.2MG ONCE/SINGLE ADMINISTRATION
     Route: 048
     Dates: start: 20210106
  35. ADENOSINE TRIPHOSPHATE DISODIUM INJECTION [Concomitant]
     Indication: MYOCARDIAL INFARCTION
     Dosage: 40.0MG ONCE/SINGLE ADMINISTRATION
     Route: 042
     Dates: start: 20210118, end: 20210118
  36. RECOMBINANT HUMAN GRANULOCYTE COLONY?STIMULATING FACTOR [Concomitant]
     Active Substance: GRANULOCYTE COLONY-STIMULATING FACTOR NOS
     Indication: WHITE BLOOD CELL COUNT
     Dosage: 100.0UG/INHAL ONCE/SINGLE ADMINISTRATION
     Route: 058
     Dates: start: 20210118, end: 20210118
  37. SODIUM BICARBONATE INJECTION [Concomitant]
     Active Substance: SODIUM BICARBONATE
     Indication: DEHYDRATION
     Dosage: 125.0ML ONCE/SINGLE ADMINISTRATION
     Route: 042
     Dates: start: 20210117, end: 20210117
  38. CISPLATIN. [Suspect]
     Active Substance: CISPLATIN
     Indication: TRANSITIONAL CELL CARCINOMA
     Dosage: 70 MG/M2 EVERY THREE WEEKS
     Route: 042
     Dates: start: 20200902, end: 20200902
  39. GEMCITABINE. [Suspect]
     Active Substance: GEMCITABINE
     Indication: TRANSITIONAL CELL CARCINOMA
     Dosage: 1000 MG/M2 EVERY THREE WEEKS
     Route: 042
     Dates: start: 20210112, end: 20210112
  40. COMPOUND SODIUM CHLORIDE INJECTION [Concomitant]
     Active Substance: SODIUM CHLORIDE
     Indication: DEHYDRATION
     Dosage: 500.0ML ONCE/SINGLE ADMINISTRATION
     Route: 042
     Dates: start: 20210118, end: 20210118
  41. COMPOUND SODIUM CHLORIDE INJECTION [Concomitant]
     Active Substance: SODIUM CHLORIDE
     Indication: DEHYDRATION
     Dosage: 500.0ML ONCE/SINGLE ADMINISTRATION
     Route: 042
     Dates: start: 20210105, end: 20210113
  42. COMPOUND SODIUM CHLORIDE INJECTION [Concomitant]
     Active Substance: SODIUM CHLORIDE
     Indication: INFUSION
     Dosage: 500.0ML ONCE/SINGLE ADMINISTRATION
     Route: 042
     Dates: start: 20210105, end: 20210113
  43. DEXAMETHASONE SODIUM PHOSPHATE INJECTION [Concomitant]
     Active Substance: DEXAMETHASONE SODIUM PHOSPHATE
     Indication: PROPHYLAXIS OF NAUSEA AND VOMITING
     Dosage: 10.0MG ONCE/SINGLE ADMINISTRATION
     Route: 042
     Dates: start: 20210106, end: 20210106
  44. DEXAMETHASONE SODIUM PHOSPHATE INJECTION [Concomitant]
     Active Substance: DEXAMETHASONE SODIUM PHOSPHATE
     Indication: HYPERSENSITIVITY
     Dosage: 10.0MG ONCE/SINGLE ADMINISTRATION
     Route: 042
     Dates: start: 20210112, end: 20210112
  45. RECOMBINANT HUMAN GRANULOCYTE STIMULATING FACTOR INJECTION [Concomitant]
     Indication: LEUKOPENIA
     Dosage: 300UG/INHAL
     Route: 058
  46. RECOMBINANT HUMAN GRANULOCYTE STIMULATING FACTOR INJECTION [Concomitant]
     Indication: LEUKOCYTOSIS
     Dosage: 300UG/INHAL
     Route: 058
  47. RECOMBINANT HUMAN GRANULOCYTE STIMULATING FACTOR INJECTION [Concomitant]
     Indication: LEUKOCYTOSIS
     Dosage: 300.0UG/INHAL ONCE/SINGLE ADMINISTRATION
     Route: 058
     Dates: start: 20210111, end: 20210111
  48. COMPOUND AMINO ACID INJECTION [Concomitant]
     Active Substance: AMINO ACIDS, SOURCE UNSPECIFIED
     Indication: DEHYDRATION
     Dosage: 200.0ML ONCE/SINGLE ADMINISTRATION
     Route: 042
     Dates: start: 20210118, end: 20210118
  49. DURVALUMAB. [Suspect]
     Active Substance: DURVALUMAB
     Indication: TRANSITIONAL CELL CARCINOMA
     Route: 042
     Dates: start: 20210330, end: 20210330
  50. DURVALUMAB. [Suspect]
     Active Substance: DURVALUMAB
     Indication: TRANSITIONAL CELL CARCINOMA
     Route: 042
     Dates: start: 20201127, end: 20201127
  51. GEMCITABINE. [Suspect]
     Active Substance: GEMCITABINE
     Indication: TRANSITIONAL CELL CARCINOMA
     Dosage: 1000 MG/M2 EVERY THREE WEEKS
     Route: 042
     Dates: start: 20200923, end: 20200923
  52. GEMCITABINE. [Suspect]
     Active Substance: GEMCITABINE
     Indication: TRANSITIONAL CELL CARCINOMA
     Dosage: 1000 MG/M2 EVERY THREE WEEKS
     Route: 042
     Dates: start: 20200929, end: 20200929
  53. AMLODIPINE BESYLATE TABLET [Concomitant]
     Active Substance: AMLODIPINE BESYLATE
     Indication: BLOOD PRESSURE MEASUREMENT
     Route: 048
     Dates: start: 201907
  54. HYDROCODONE/PARACETAMOL [Concomitant]
     Active Substance: ACETAMINOPHEN\HYDROCODONE BITARTRATE
     Indication: ANALGESIC THERAPY
     Dosage: 1.00 SLICE EVERY SIX HOURS
     Route: 048
     Dates: start: 20200812
  55. GLUCOSE/POTASSIUM [Concomitant]
     Indication: OEDEMA
     Route: 042
     Dates: start: 20200831
  56. COMPOUND SODIUM CHLORIDE INJECTION [Concomitant]
     Active Substance: SODIUM CHLORIDE
     Indication: OEDEMA
     Dosage: 500.0ML ONCE/SINGLE ADMINISTRATION
     Route: 042
     Dates: start: 20210118, end: 20210118
  57. DEXAMETHASONE SODIUM PHOSPHATE INJECTION [Concomitant]
     Active Substance: DEXAMETHASONE SODIUM PHOSPHATE
     Indication: ANTIALLERGIC THERAPY
     Dosage: 10.0MG ONCE/SINGLE ADMINISTRATION
     Route: 042
     Dates: start: 20210112, end: 20210112
  58. RABEPRAZOLE SODIUM FOR INJECTION [Concomitant]
     Indication: PROTOTHECOSIS
     Dosage: 20.0MG ONCE/SINGLE ADMINISTRATION
     Route: 042
     Dates: start: 20210106, end: 20210113
  59. PALONOSETRON HYDROCHLORIDE INJECTION [Concomitant]
     Active Substance: PALONOSETRON HYDROCHLORIDE
     Indication: PROPHYLAXIS OF NAUSEA AND VOMITING
     Dosage: 5.0ML ONCE/SINGLE ADMINISTRATION
     Route: 042
     Dates: start: 20210106, end: 20210106
  60. MONTMORILLONITE POWDER [Concomitant]
     Indication: TREATMENT DELAYED
     Route: 048
     Dates: start: 20210118, end: 20210124
  61. DURVALUMAB. [Suspect]
     Active Substance: DURVALUMAB
     Indication: TRANSITIONAL CELL CARCINOMA
     Route: 042
     Dates: start: 20201127, end: 20201127
  62. DURVALUMAB. [Suspect]
     Active Substance: DURVALUMAB
     Indication: TRANSITIONAL CELL CARCINOMA
     Route: 042
     Dates: start: 20210427, end: 20210427
  63. TREMELIMUMAB. [Suspect]
     Active Substance: TREMELIMUMAB
     Indication: TRANSITIONAL CELL CARCINOMA
     Route: 042
     Dates: start: 20200902, end: 20200902
  64. CISPLATIN. [Suspect]
     Active Substance: CISPLATIN
     Indication: TRANSITIONAL CELL CARCINOMA
     Dosage: 70 MG/M EVERY THREE WEEKS
     Route: 042
     Dates: start: 20201105, end: 20201105
  65. GEMCITABINE. [Suspect]
     Active Substance: GEMCITABINE
     Indication: TRANSITIONAL CELL CARCINOMA
     Dosage: 1000 MG/M2 EVERY THREE WEEKS
     Route: 042
     Dates: start: 20210106, end: 20210106
  66. 0.9% SODIUM CHLORIDE INJECTION [Concomitant]
     Active Substance: SODIUM CHLORIDE
     Indication: DEHYDRATION
     Route: 042
     Dates: start: 20200812
  67. RABEPRAZOLE SODIUM FOR INJECTION [Concomitant]
     Indication: GASTRIC DISORDER
     Dosage: 20.0MG ONCE/SINGLE ADMINISTRATION
     Route: 042
     Dates: start: 20210106, end: 20210113
  68. GLYCYRRHIZIN MONOAMMONIUM CYSTEINE SODIUM CHLORIDE INJECTION [Concomitant]
     Indication: PROTOTHECOSIS
     Dosage: 250.0ML ONCE/SINGLE ADMINISTRATION
     Route: 042
     Dates: start: 20210106, end: 20210111
  69. RED GINSENG, TREMELLA FUNGUS, ANGELICA, CHINESE YAM, PIG SPINAL COR... [Concomitant]
     Indication: INSOMNIA
     Dosage: 0.6G ONCE/SINGLE ADMINISTRATION
     Route: 048
     Dates: start: 20201022, end: 20201221
  70. RECOMBINANT HUMAN GRANULOCYTE STIMULATING FACTOR INJECTION [Concomitant]
     Indication: WHITE BLOOD CELL COUNT
     Dosage: 300UG/INHAL
     Route: 058
  71. RECOMBINANT HUMAN GRANULOCYTE STIMULATING FACTOR INJECTION [Concomitant]
     Indication: WHITE BLOOD CELL COUNT
     Dosage: 300.0UG/INHAL ONCE/SINGLE ADMINISTRATION
     Route: 058
     Dates: start: 20210111, end: 20210111
  72. DIAZEPAM. [Concomitant]
     Active Substance: DIAZEPAM
     Indication: INSOMNIA
     Route: 048
     Dates: start: 20210110, end: 20210111
  73. ALPRAZOLAM TABLETS [Concomitant]
     Active Substance: ALPRAZOLAM
     Indication: INSOMNIA
     Dosage: 0.8MG ONCE/SINGLE ADMINISTRATION
     Route: 048
     Dates: start: 20210112, end: 20210112
  74. RECOMBINANT HUMAN GRANULOCYTE COLONY?STIMULATING FACTOR [Concomitant]
     Active Substance: GRANULOCYTE COLONY-STIMULATING FACTOR NOS
     Indication: WHITE BLOOD CELL COUNT
     Dosage: 100.0UG/INHAL ONCE/SINGLE ADMINISTRATION
     Route: 030
     Dates: start: 20210118, end: 20210118
  75. SODIUM POTASSIUM MAGNESIUM CALCLUM GLUCOSE INJECTION [Concomitant]
     Indication: DEHYDRATION
     Route: 042
     Dates: start: 20210105, end: 20210108
  76. DURVALUMAB. [Suspect]
     Active Substance: DURVALUMAB
     Indication: TRANSITIONAL CELL CARCINOMA
     Route: 042
     Dates: start: 20210302, end: 20210302
  77. DURVALUMAB. [Suspect]
     Active Substance: DURVALUMAB
     Indication: TRANSITIONAL CELL CARCINOMA
     Route: 042
     Dates: start: 20210427, end: 20210427
  78. CISPLATIN. [Suspect]
     Active Substance: CISPLATIN
     Indication: TRANSITIONAL CELL CARCINOMA
     Dosage: 70 MG/M2 EVERY THREE WEEKS
     Route: 042
     Dates: start: 20201015, end: 20201015
  79. CISPLATIN. [Suspect]
     Active Substance: CISPLATIN
     Indication: TRANSITIONAL CELL CARCINOMA
     Dosage: 70 MG/M2 EVERY THREE WEEKS
     Route: 042
     Dates: start: 20201127, end: 20201127
  80. CISPLATIN. [Suspect]
     Active Substance: CISPLATIN
     Indication: TRANSITIONAL CELL CARCINOMA
     Dosage: 70 MG/M2 EVERY THREE WEEKS
     Route: 042
     Dates: start: 20210106, end: 20210106
  81. COMPOUND SODIUM CHLORIDE INJECTION [Concomitant]
     Active Substance: SODIUM CHLORIDE
     Indication: OEDEMA
     Dosage: 500.0ML ONCE/SINGLE ADMINISTRATION
     Route: 042
     Dates: start: 20210105, end: 20210113
  82. DEXAMETHASONE SODIUM PHOSPHATE INJECTION [Concomitant]
     Active Substance: DEXAMETHASONE SODIUM PHOSPHATE
     Indication: ANTIALLERGIC THERAPY
     Dosage: 10.0MG ONCE/SINGLE ADMINISTRATION
     Route: 042
     Dates: start: 20210106, end: 20210106
  83. RABEPRAZOLE SODIUM FOR INJECTION [Concomitant]
     Indication: PROTOTHECOSIS
     Dosage: 20.0MG ONCE/SINGLE ADMINISTRATION
     Route: 042
     Dates: start: 20210106, end: 20210113
  84. RABEPRAZOLE SODIUM FOR INJECTION [Concomitant]
     Indication: GASTRIC DISORDER
     Dosage: 20.0MG ONCE/SINGLE ADMINISTRATION
     Route: 042
     Dates: start: 20210106, end: 20210113
  85. POTASSIUM CHLORIDE SUSTAINED RELEASE TABLETS [Concomitant]
     Indication: HYPOKALAEMIA
     Dosage: 2.00 PIECE ONCE/SINGLE ADMINISTRATION
     Route: 048
     Dates: start: 20210105
  86. MIXED SUGAR AND ELECTROLYTE INJECTION [Concomitant]
     Indication: DEHYDRATION
     Route: 042
     Dates: start: 20210105, end: 20210108

REACTIONS (2)
  - Leukopenia [Not Recovered/Not Resolved]
  - Diarrhoea [Recovered/Resolved]

NARRATIVE: CASE EVENT DATE: 20210117
